FAERS Safety Report 9658900 (Version 2)
Quarter: 2013Q4

REPORT INFORMATION
  Report Type: Spontaneous
  Country: GB (occurrence: GB)
  Receive Date: 20131030
  Receipt Date: 20131113
  Transmission Date: 20140711
  Serious: Yes (Hospitalization)
  Sender: FDA-Public Use
  Company Number: GB-ROCHE-1294855

PATIENT
  Sex: Female

DRUGS (3)
  1. PERJETA [Suspect]
     Indication: PRODUCT USED FOR UNKNOWN INDICATION
     Route: 065
  2. HERCEPTIN [Suspect]
     Indication: PRODUCT USED FOR UNKNOWN INDICATION
     Route: 065
  3. DOCETAXEL [Concomitant]

REACTIONS (3)
  - Gastrointestinal haemorrhage [Unknown]
  - Diarrhoea [Unknown]
  - Constipation [Unknown]
